FAERS Safety Report 24541101 (Version 1)
Quarter: 2024Q4

REPORT INFORMATION
  Report Type: Spontaneous
  Country: US (occurrence: US)
  Receive Date: 20241023
  Receipt Date: 20241023
  Transmission Date: 20250115
  Serious: No
  Sender: PFIZER
  Company Number: US-PFIZER INC-202400283431

PATIENT
  Age: 22 Year
  Sex: Male

DRUGS (2)
  1. VELSIPITY [Interacting]
     Active Substance: ETRASIMOD ARGININE
     Dosage: 2 MG, 1 TABLET, ORALLY, ONCE A DAY
     Route: 048
  2. MESALAMINE [Interacting]
     Active Substance: MESALAMINE
     Dosage: UNK

REACTIONS (1)
  - Drug interaction [Unknown]
